FAERS Safety Report 6655889-2 (Version None)
Quarter: 2010Q1

REPORT INFORMATION
  Report Type: 
  Country: None (occurrence: None)
  Receive Date: 20100329
  Receipt Date: 20100315
  Transmission Date: 20100710
  Serious: Yes (Other)
  Sender: FDA-Public Use
  Company Number: PHHY2010TR16388

PATIENT
  Age: 35 Year
  Sex: Female

DRUGS (1)
  1. OXCARBAZEPINE [Suspect]
     Indication: EPILEPSY
     Dosage: 300 MG, DAILY

REACTIONS (9)
  - BODY MASS INDEX INCREASED [None]
  - BONE DISORDER [None]
  - EPILEPSY [None]
  - GRAND MAL CONVULSION [None]
  - HYPERGLYCAEMIA [None]
  - HYPOGLYCAEMIA [None]
  - HYPONATRAEMIA [None]
  - INSULINOMA [None]
  - SURGERY [None]
